FAERS Safety Report 19270094 (Version 3)
Quarter: 2022Q2

REPORT INFORMATION
  Report Type: Report from Study
  Country: ES (occurrence: ES)
  Receive Date: 20210518
  Receipt Date: 20220510
  Transmission Date: 20220720
  Serious: Yes (Hospitalization, Other)
  Sender: FDA-Public Use
  Company Number: ES-GALDERMA-ES2021009556

PATIENT

DRUGS (1)
  1. DOXYCYCLINE HYCLATE [Suspect]
     Active Substance: DOXYCYCLINE HYCLATE
     Dosage: UNK
     Route: 065

REACTIONS (2)
  - Pancreatitis acute [Unknown]
  - Obstructive pancreatitis [Unknown]
